FAERS Safety Report 18124743 (Version 1)
Quarter: 2020Q3

REPORT INFORMATION
  Report Type: Spontaneous
  Country: US (occurrence: US)
  Receive Date: 20200807
  Receipt Date: 20200807
  Transmission Date: 20201103
  Serious: No
  Sender: FDA-Public Use
  Company Number: US-009507513-2008USA002406

PATIENT
  Sex: Female

DRUGS (2)
  1. NEXPLANON [Suspect]
     Active Substance: ETONOGESTREL
     Indication: CONTRACEPTION
     Dosage: 1 IMPLANT, ONCE
     Route: 059
     Dates: start: 202003
  2. IMATINIB MESYLATE. [Concomitant]
     Active Substance: IMATINIB MESYLATE
     Dosage: UNK

REACTIONS (1)
  - Adverse event [Unknown]
